FAERS Safety Report 4660266-X (Version None)
Quarter: 2005Q2

REPORT INFORMATION
  Report Type: 
  Country: None (occurrence: None)
  Receive Date: 20050419
  Receipt Date: 20050203
  Transmission Date: 20051028
  Serious: Yes (Hospitalization)
  Sender: FDA-Public Use
  Company Number: US-2005-001597

PATIENT
  Age: 70 Year
  Sex: Female

DRUGS (4)
  1. ULTRAVIST (PHARMACY BULK) [Suspect]
     Indication: COMPUTERISED TOMOGRAM ABDOMEN
     Dosage: 125 ML, 1 DOSE, UNK
     Dates: start: 20041229, end: 20041229
  2. ESTROGEN NOS [Concomitant]
  3. LEVOTHYROXINE SODIUM [Concomitant]
  4. PROVERA [Concomitant]

REACTIONS (7)
  - ANAPHYLACTOID REACTION [None]
  - CHEST PAIN [None]
  - DYSPHAGIA [None]
  - HYPOTENSION [None]
  - NAUSEA [None]
  - SYNCOPE [None]
  - URTICARIA [None]
